FAERS Safety Report 8185222 (Version 5)
Quarter: 2013Q4

REPORT INFORMATION
  Report Type: Spontaneous
  Country: US (occurrence: US)
  Receive Date: 20111018
  Receipt Date: 20131227
  Transmission Date: 20140711
  Serious: Yes (Hospitalization, Other)
  Sender: FDA-Public Use
  Company Number: US-ASTRAZENECA-2011SE00896

PATIENT
  Age: 58 Year
  Sex: Male
  Weight: 86.2 kg

DRUGS (2)
  1. SYMBICORT PMDI [Suspect]
     Indication: ASTHMA
     Dosage: 160/4.5 MCG UNK FREQUENCY
     Route: 055
  2. SYMBICORT PMDI [Suspect]
     Indication: ASTHMA
     Dosage: 160/4.5 MCG TWO TIMES A DAY
     Route: 055

REACTIONS (6)
  - Infection [Unknown]
  - Arthropod bite [Unknown]
  - Atypical pneumonia [Unknown]
  - Abscess limb [Unknown]
  - Dyspnoea [Unknown]
  - Intentional drug misuse [Unknown]
